FAERS Safety Report 24307741 (Version 5)
Quarter: 2024Q4

REPORT INFORMATION
  Report Type: Spontaneous
  Country: JP (occurrence: JP)
  Receive Date: 20240911
  Receipt Date: 20241024
  Transmission Date: 20250114
  Serious: No
  Sender: EISAI
  Company Number: JP-Eisai-202407048_LEN-HCC_P_1

PATIENT
  Age: 73 Year
  Sex: Male

DRUGS (1)
  1. LENVIMA [Suspect]
     Active Substance: LENVATINIB
     Indication: Hepatocellular carcinoma
     Dosage: DOSE AND FREQUENCY UNKNOWN
     Route: 048

REACTIONS (1)
  - Hepatic encephalopathy [Recovering/Resolving]
